FAERS Safety Report 20578269 (Version 1)
Quarter: 2022Q1

REPORT INFORMATION
  Report Type: Spontaneous
  Country: US (occurrence: None)
  Receive Date: 20220310
  Receipt Date: 20220310
  Transmission Date: 20220423
  Serious: No
  Sender: FDA-Public Use
  Company Number: None

PATIENT
  Age: 74 Year
  Sex: Female
  Weight: 59 kg

DRUGS (2)
  1. NIRMATRELVIR\RITONAVIR [Suspect]
     Active Substance: NIRMATRELVIR\RITONAVIR
     Indication: COVID-19
     Dosage: OTHER QUANTITY : 300/100 MG;?FREQUENCY : TWICE A DAY;?
     Dates: start: 20210107, end: 20210109
  2. NIRMATRELVIR\RITONAVIR [Suspect]
     Active Substance: NIRMATRELVIR\RITONAVIR
     Dosage: OTHER QUANTITY : 300/100 MG;?FREQUENCY : TWICE A DAY;?
     Route: 048
     Dates: start: 20210107, end: 20210109

REACTIONS (3)
  - Abdominal distension [None]
  - Drug intolerance [None]
  - Product use complaint [None]

NARRATIVE: CASE EVENT DATE: 20210110
